FAERS Safety Report 7720307-X (Version None)
Quarter: 2011Q3

REPORT INFORMATION
  Report Type: 
  Country: None (occurrence: None)
  Receive Date: 20110831
  Receipt Date: 20110829
  Transmission Date: 20111222
  Serious: No
  Sender: FDA-Public Use
  Company Number: US-PFIZER INC-2011175203

PATIENT
  Sex: Female
  Weight: 68.027 kg

DRUGS (4)
  1. SIMVASTATIN [Concomitant]
     Dosage: UNK
  2. SYNTHROID [Concomitant]
     Dosage: UNK
  3. CENTRUM ULTRA WOMEN'S [Suspect]
     Indication: VITAMIN SUPPLEMENTATION
     Dosage: UNK, 1X/DAY
     Route: 048
     Dates: start: 20110201, end: 20110731
  4. PREMPRO [Suspect]
     Indication: HOT FLUSH
     Dosage: 625/2.5

REACTIONS (4)
  - FOOD ALLERGY [None]
  - NONSPECIFIC REACTION [None]
  - DRUG DOSE OMISSION [None]
  - VAGINAL HAEMORRHAGE [None]
